FAERS Safety Report 4613762-5 (Version None)
Quarter: 2005Q1

REPORT INFORMATION
  Report Type: 
  Country: None (occurrence: None)
  Receive Date: 20050321
  Receipt Date: 20050223
  Transmission Date: 20050727
  Serious: Yes (Other)
  Sender: FDA-Public Use
  Company Number: JP-MERCK-0502USA03405

PATIENT
  Age: 80 Year
  Sex: Female

DRUGS (6)
  1. SINGULAIR [Suspect]
     Indication: ASTHMA
     Route: 048
     Dates: start: 20050217, end: 20050223
  2. QVAR 40 [Concomitant]
     Route: 055
     Dates: start: 20050113
  3. THEO-DUR [Concomitant]
     Route: 048
  4. MUCODYNE [Concomitant]
     Route: 048
  5. TULOBUTEROL [Concomitant]
     Route: 065
  6. GASTER [Concomitant]
     Route: 065

REACTIONS (8)
  - COUGH [None]
  - DYSPNOEA [None]
  - EOSINOPHIL PERCENTAGE INCREASED [None]
  - GINGIVAL BLEEDING [None]
  - HAEMOGLOBIN DECREASED [None]
  - IMMUNE SYSTEM DISORDER [None]
  - PLATELET COUNT DECREASED [None]
  - PLATELET DESTRUCTION INCREASED [None]
